FAERS Safety Report 25617464 (Version 1)
Quarter: 2025Q3

REPORT INFORMATION
  Report Type: Spontaneous
  Country: US (occurrence: None)
  Receive Date: 20250728
  Receipt Date: 20250728
  Transmission Date: 20251020
  Serious: Yes (Hospitalization)
  Sender: FDA-CTU
  Company Number: None

PATIENT
  Sex: Female

DRUGS (2)
  1. MYCOPHENOLATE MOFETIL [Suspect]
     Active Substance: MYCOPHENOLATE MOFETIL
     Indication: Lupus nephritis
     Dosage: FREQUENCY : TWICE A DAY;?STRENGTH: 500
     Route: 048
     Dates: start: 20250626
  2. BENLYSTA [Concomitant]
     Active Substance: BELIMUMAB

REACTIONS (1)
  - Product use issue [None]
